FAERS Safety Report 8484541-6 (Version None)
Quarter: 2012Q3

REPORT INFORMATION
  Report Type: 
  Country: None (occurrence: None)
  Receive Date: 20120703
  Receipt Date: 20120625
  Transmission Date: 20120928
  Serious: Yes (Other)
  Sender: FDA-Public Use
  Company Number: US-UCBSA-060630

PATIENT
  Sex: Male
  Weight: 100 kg

DRUGS (8)
  1. SERTRALINE HYDROCHLORIDE [Suspect]
     Indication: POST-TRAUMATIC STRESS DISORDER
  2. ASPIRIN [Suspect]
  3. METOPROLOL [Concomitant]
  4. ALPRAZOLAM [Suspect]
  5. ZESTRIL [Concomitant]
  6. LISINOPRIL [Suspect]
  7. GREENSTONE [Suspect]
     Indication: POST-TRAUMATIC STRESS DISORDER
     Dates: start: 20080401
  8. ZOLOFT [Suspect]
     Indication: POST-TRAUMATIC STRESS DISORDER

REACTIONS (9)
  - MYOCARDIAL INFARCTION [None]
  - DRUG INEFFECTIVE [None]
  - DRY MOUTH [None]
  - CARDIAC DISORDER [None]
  - COUGH [None]
  - DEPRESSION [None]
  - HYPERHIDROSIS [None]
  - BLOOD CHOLESTEROL INCREASED [None]
  - HOT FLUSH [None]
